FAERS Safety Report 24694185 (Version 1)
Quarter: 2024Q4

REPORT INFORMATION
  Report Type: Spontaneous
  Country: US (occurrence: US)
  Receive Date: 20241204
  Receipt Date: 20241204
  Transmission Date: 20250115
  Serious: No
  Sender: Kenvue
  Company Number: US-KENVUE-20241102693

PATIENT
  Sex: Male

DRUGS (3)
  1. TYLENOL [Suspect]
     Active Substance: ACETAMINOPHEN
     Indication: Product used for unknown indication
     Dosage: UNK
     Route: 065
  2. CYCLOBENZAPRINE [Suspect]
     Active Substance: CYCLOBENZAPRINE
     Indication: Product used for unknown indication
     Dosage: UNK
     Route: 065
  3. INLYTA [Concomitant]
     Active Substance: AXITINIB
     Indication: Renal cell carcinoma
     Dosage: 5 MILLIGRAM, TWICE A DAY (ONE 5MG TABLET ORALLY EVERY 12 HOURS)
     Route: 048
     Dates: start: 20240913

REACTIONS (1)
  - Adverse event [Recovering/Resolving]
